FAERS Safety Report 10994402 (Version 1)
Quarter: 2015Q2

REPORT INFORMATION
  Report Type: Spontaneous
  Country: US (occurrence: None)
  Receive Date: 20150406
  Receipt Date: 20150406
  Transmission Date: 20150821
  Serious: Yes (Disabling)
  Sender: FDA-Public Use
  Company Number: None

PATIENT
  Age: 46 Year
  Sex: Female
  Weight: 47.63 kg

DRUGS (2)
  1. BIRTH CONTROL/ ORTHOTRICYCLONE [Concomitant]
  2. TAMIFLU [Suspect]
     Active Substance: OSELTAMIVIR PHOSPHATE
     Indication: INFLUENZA VIRUS TEST POSITIVE
     Dosage: 1 CAPSULE
     Route: 048
     Dates: start: 20150301, end: 20150304

REACTIONS (6)
  - Areflexia [None]
  - Aphonia [None]
  - Disturbance in attention [None]
  - Economic problem [None]
  - Road traffic accident [None]
  - Impaired work ability [None]

NARRATIVE: CASE EVENT DATE: 20150301
